FAERS Safety Report 20065603 (Version 1)
Quarter: 2021Q4

REPORT INFORMATION
  Report Type: Spontaneous
  Country: BR (occurrence: BR)
  Receive Date: 20211113
  Receipt Date: 20211113
  Transmission Date: 20220304
  Serious: Yes (Hospitalization, Other)
  Sender: FDA-Public Use
  Company Number: None

PATIENT
  Age: 78 Year
  Sex: Male

DRUGS (15)
  1. LOSARTAN POTASSIUM [Suspect]
     Active Substance: LOSARTAN POTASSIUM
     Dosage: UNK
     Dates: end: 20191010
  2. LOPERAMIDE [Suspect]
     Active Substance: LOPERAMIDE
     Indication: Portogram
     Dosage: UNK
     Dates: start: 20191004, end: 20191004
  3. METRONIDAZOLE BENZOATE [Suspect]
     Active Substance: METRONIDAZOLE BENZOATE
     Dosage: 500 MILLIGRAM OF 8/8 HOURS,3 FOR 8 HOURS
     Route: 042
     Dates: start: 20190906, end: 20190915
  4. CEFTRIAXONE SODIUM [Suspect]
     Active Substance: CEFTRIAXONE SODIUM
     Dosage: 1 GRAM,2 FOR 12 HOURS
     Route: 042
     Dates: start: 20190906, end: 20190915
  5. DIPYRONE [Suspect]
     Active Substance: DIPYRONE
     Dosage: UNK
  6. ASPIRIN [Suspect]
     Active Substance: ASPIRIN
     Dosage: 100 MILLIGRAM,1 PER 24 HOURS
  7. CARVEDILOL [Suspect]
     Active Substance: CARVEDILOL
     Dosage: UNK
     Dates: end: 20190910
  8. ENOXAPARIN [Concomitant]
     Active Substance: ENOXAPARIN
     Dosage: UNK
  9. ATORVASTATIN [Concomitant]
     Active Substance: ATORVASTATIN
     Dosage: UNK
  10. OMEPRAZOL [OMEPRAZOLE SODIUM] [Concomitant]
     Dosage: UNK
  11. LACTULOSE [Concomitant]
     Active Substance: LACTULOSE
     Dosage: UNK
  12. SPIRONOLACTONE [Concomitant]
     Active Substance: SPIRONOLACTONE
     Dosage: UNK
  13. FUROSEMIDE SODIUM [Concomitant]
     Active Substance: FUROSEMIDE SODIUM
     Dosage: UNK
  14. DOMPERIDONE [Concomitant]
     Active Substance: DOMPERIDONE
     Dosage: UNK
  15. INSULIN PORK\INSULIN PURIFIED PORK [Concomitant]
     Active Substance: INSULIN PORK\INSULIN PURIFIED PORK
     Dosage: UNK

REACTIONS (5)
  - Creatinine renal clearance increased [Recovered/Resolved]
  - Rash papular [Recovered/Resolved]
  - Eosinophilia [Unknown]
  - Drug reaction with eosinophilia and systemic symptoms [Unknown]
  - Pruritus [Recovered/Resolved]

NARRATIVE: CASE EVENT DATE: 20191005
